FAERS Safety Report 22297401 (Version 1)
Quarter: 2023Q2

REPORT INFORMATION
  Report Type: Other
  Country: RO (occurrence: None)
  Receive Date: 20230509
  Receipt Date: 20230509
  Transmission Date: 20230721
  Serious: Yes (Other)
  Sender: FDA-Public Use
  Company Number: RO-ROCHE-2111472

PATIENT
  Sex: Female
  Weight: 110 kg

DRUGS (2)
  1. TOCILIZUMAB [Suspect]
     Active Substance: TOCILIZUMAB
     Indication: Rheumatoid arthritis
     Dosage: 162MG/0.9ML
     Route: 058
  2. TOCILIZUMAB [Suspect]
     Active Substance: TOCILIZUMAB
     Indication: Polyarthritis

REACTIONS (7)
  - Cataract [Not Recovered/Not Resolved]
  - Disability [Unknown]
  - Diabetes mellitus [Unknown]
  - Weight increased [Unknown]
  - Gait disturbance [Unknown]
  - Arthralgia [Unknown]
  - Memory impairment [Unknown]
